FAERS Safety Report 8029249-6 (Version None)
Quarter: 2012Q1

REPORT INFORMATION
  Report Type: 
  Country: None (occurrence: None)
  Receive Date: 20120106
  Receipt Date: 20111223
  Transmission Date: 20120608
  Serious: Yes (Hospitalization)
  Sender: FDA-Public Use
  Company Number: FR-CELGENEUS-056-21880-11120673

PATIENT
  Sex: Male

DRUGS (23)
  1. AMOXICILLIN [Concomitant]
     Dosage: 4 CAPSULE
     Route: 048
     Dates: start: 20111223
  2. POTASSIUM CHLORIDE [Concomitant]
     Dosage: 6 CAPSULE
     Route: 048
     Dates: start: 20111223
  3. FLUCONAZOLE [Concomitant]
     Dosage: 100 MILLIGRAM
     Route: 048
     Dates: start: 20111219, end: 20111228
  4. AMOXICILLIN [Concomitant]
     Dosage: 2 CAPSULE
     Route: 048
     Dates: start: 20111219, end: 20111223
  5. ENOXAPARIN [Concomitant]
     Dosage: 4000 IU (INTERNATIONAL UNIT)
     Route: 058
     Dates: start: 20111219
  6. DEXAMETHASONE [Suspect]
     Indication: PLASMACYTOMA
     Dosage: 20 MILLIGRAM
     Route: 065
     Dates: start: 20111024
  7. DEXAMETHASONE [Suspect]
     Dosage: DOSE REDUCED
     Route: 065
  8. HEPTAMINOL [Concomitant]
     Route: 048
     Dates: start: 20111220, end: 20111222
  9. SULFAMETHOXAZOLE [Concomitant]
     Route: 048
     Dates: start: 20111219
  10. VALACICLOVIR [Concomitant]
     Dosage: 1000 MILLIGRAM
     Route: 048
     Dates: start: 20111130
  11. VALACICLOVIR [Concomitant]
     Dosage: 2 TABLET
     Route: 048
     Dates: start: 20111219
  12. REVLIMID [Suspect]
     Indication: PLASMACYTOMA
     Dosage: 25 MILLIGRAM
     Route: 048
     Dates: start: 20111024
  13. BORTEZOMIB [Suspect]
     Indication: PLASMACYTOMA
     Dosage: 2.5 MILLIGRAM
     Route: 065
     Dates: start: 20111024
  14. LOVENOX [Concomitant]
     Route: 058
     Dates: start: 20111129, end: 20111130
  15. POTASSIUM CHLORIDE [Concomitant]
     Dosage: 4 CAPSULE
     Route: 048
     Dates: start: 20111222, end: 20111223
  16. HEPTAMINOL [Concomitant]
     Dosage: 3 TABLET
     Route: 048
     Dates: start: 20111219, end: 20111220
  17. POTASSIUM CHLORIDE [Concomitant]
     Dosage: 3G AT 10H29 THEN STOP
     Route: 065
     Dates: start: 20111223, end: 20111223
  18. ALUMINUM HYDROXIDE AND MAGNESIUM TRISILICATE [Concomitant]
     Route: 048
     Dates: start: 20111219
  19. LOVENOX [Concomitant]
     Indication: PROPHYLAXIS
     Dosage: 4000 IU (INTERNATIONAL UNIT)
     Route: 058
     Dates: start: 20111024
  20. LOVENOX [Concomitant]
     Route: 058
     Dates: start: 20111130
  21. RACECADOTRIL [Concomitant]
     Dosage: 300 MILLIGRAM
     Route: 048
     Dates: start: 20111221, end: 20111227
  22. POTASSIUM CHLORIDE [Concomitant]
     Dosage: 2G AT 11H20 THEN STOP
     Route: 041
     Dates: start: 20111222, end: 20111222
  23. HEPTAMINOL [Concomitant]
     Dosage: 12 TABLET
     Route: 048
     Dates: start: 20111222

REACTIONS (2)
  - LUNG DISORDER [None]
  - DIARRHOEA [None]
